FAERS Safety Report 10628257 (Version 1)
Quarter: 2014Q4

REPORT INFORMATION
  Report Type: Spontaneous
  Country: US (occurrence: US)
  Receive Date: 20141205
  Receipt Date: 20141205
  Transmission Date: 20150529
  Serious: Yes (Other)
  Sender: FDA-Public Use
  Company Number: US-BRISTOL-MYERS SQUIBB COMPANY-21588504

PATIENT
  Age: 86 Year
  Sex: Female

DRUGS (2)
  1. AMIODARONE [Concomitant]
     Active Substance: AMIODARONE
  2. WARFARIN SODIUM. [Suspect]
     Active Substance: WARFARIN SODIUM
     Indication: ATRIAL FIBRILLATION

REACTIONS (1)
  - Deep vein thrombosis [Unknown]
